FAERS Safety Report 11690710 (Version 2)
Quarter: 2016Q1

REPORT INFORMATION
  Report Type: Spontaneous
  Country: US (occurrence: US)
  Receive Date: 20151102
  Receipt Date: 20160106
  Transmission Date: 20160525
  Serious: Yes (Hospitalization, Other)
  Sender: FDA-Public Use
  Company Number: US-DSJP-DSU-2015-133240

PATIENT

DRUGS (9)
  1. BENICAR HCT [Suspect]
     Active Substance: HYDROCHLOROTHIAZIDE\OLMESARTAN MEDOXOMIL
     Indication: PRODUCT USED FOR UNKNOWN INDICATION
     Dosage: UNK
     Dates: start: 201005
  2. FLONASE                            /00908302/ [Concomitant]
     Active Substance: MOMETASONE FUROATE
     Indication: NASAL DISORDER
     Dosage: 50 MCG, 2 SPRAYS EACH NOSTRIL TWICE DAILY
  3. BENICAR [Suspect]
     Active Substance: OLMESARTAN MEDOXOMIL
     Indication: HYPERTENSION
     Dosage: UNK
     Dates: start: 201005
  4. MAGNESIUM DIOXIDE [Concomitant]
     Indication: MUSCLE SPASMS
     Dosage: UNK
     Dates: start: 2010
  5. LUBRICANT EYE DROPS [Concomitant]
     Active Substance: POLYETHYLENE GLYCOL 400\PROPYLENE GLYCOL
     Indication: DRY EYE
     Dosage: UNK, AS NEEDED
     Dates: start: 201005
  6. NORCO [Concomitant]
     Active Substance: ACETAMINOPHEN\HYDROCODONE BITARTRATE
     Indication: PAIN
     Dosage: 10/325 MG, BID
     Dates: start: 2010
  7. PROAIR HFA [Concomitant]
     Active Substance: ALBUTEROL SULFATE
     Indication: DYSPNOEA
     Dosage: 90 MCG INHALER 2 PUFFS AS NEEDED
  8. ALPRAZOLAM. [Concomitant]
     Active Substance: ALPRAZOLAM
     Indication: ANXIETY
     Dosage: 1 MG, TID
     Dates: start: 2009
  9. ALPRAZOLAM. [Concomitant]
     Active Substance: ALPRAZOLAM
     Indication: PANIC ATTACK

REACTIONS (8)
  - Malabsorption [Unknown]
  - Irritable bowel syndrome [Unknown]
  - Osteoarthritis [Unknown]
  - Blood pressure decreased [Unknown]
  - Cardiac valve disease [Unknown]
  - Spinal osteoarthritis [Unknown]
  - Acute kidney injury [Unknown]
  - Ulcer [Unknown]

NARRATIVE: CASE EVENT DATE: 2010
